FAERS Safety Report 5776077-8 (Version None)
Quarter: 2008Q2

REPORT INFORMATION
  Report Type: 
  Country: None (occurrence: None)
  Receive Date: 20080613
  Receipt Date: 20080605
  Transmission Date: 20081010
  Serious: Yes (Other)
  Sender: FDA-Public Use
  Company Number: 229-21880-08060363

PATIENT
  Age: 50 Year

DRUGS (1)
  1. REVLIMID (LENALIDOMIDE) (CAPSULES) [Suspect]
     Indication: DRUG USE FOR UNKNOWN INDICATION
     Dosage: 25 MG, DAILY, ORAL
     Route: 048

REACTIONS (3)
  - BLADDER DISORDER [None]
  - HAEMATURIA [None]
  - RENAL IMPAIRMENT [None]
